FAERS Safety Report 9980395 (Version 1)
Quarter: 2014Q1

REPORT INFORMATION
  Report Type: Spontaneous
  Country: AU (occurrence: AU)
  Receive Date: 20140307
  Receipt Date: 20140307
  Transmission Date: 20141002
  Serious: Yes (Disabling, Other)
  Sender: FDA-Public Use
  Company Number: AU-AMGEN-AUSSP2014014801

PATIENT
  Age: 80 Year
  Sex: Female

DRUGS (2)
  1. PROLIA [Suspect]
     Indication: PRODUCT USED FOR UNKNOWN INDICATION
     Dosage: UNK
     Route: 065
  2. CALCIUM [Concomitant]

REACTIONS (7)
  - Dupuytren^s contracture [Unknown]
  - Abdominal distension [Unknown]
  - Skin warm [Unknown]
  - Decreased appetite [Unknown]
  - Influenza [Unknown]
  - Pruritus [Unknown]
  - Fatigue [Unknown]
